FAERS Safety Report 12463685 (Version 6)
Quarter: 2017Q3

REPORT INFORMATION
  Report Type: Spontaneous
  Country: US (occurrence: US)
  Receive Date: 20160614
  Receipt Date: 20170802
  Transmission Date: 20171127
  Serious: Yes (Other)
  Sender: FDA-Public Use
  Company Number: US-PFIZER INC-2016286964

PATIENT
  Age: 69 Year
  Sex: Female

DRUGS (4)
  1. IBRANCE [Suspect]
     Active Substance: PALBOCICLIB
     Indication: BREAST CANCER METASTATIC
     Dosage: 100 MG, UNK
     Route: 048
     Dates: start: 20160527, end: 2016
  2. IBRANCE [Suspect]
     Active Substance: PALBOCICLIB
     Dosage: 75 MG, UNK
     Route: 048
     Dates: start: 201606
  3. IBRANCE [Suspect]
     Active Substance: PALBOCICLIB
     Dosage: 75 MG, CYCLIC (21 DAYS, THEN 7 DAYS BREAK)
     Route: 048
     Dates: start: 20160527
  4. FASLODEX [Suspect]
     Active Substance: FULVESTRANT
     Dosage: UNK
     Dates: start: 201605

REACTIONS (16)
  - Dyspnoea [Unknown]
  - Dizziness [Recovered/Resolved]
  - Bone pain [Unknown]
  - Pruritus [Unknown]
  - Hot flush [Unknown]
  - Nausea [Unknown]
  - Asthenia [Unknown]
  - Alopecia [Unknown]
  - Seizure [Recovered/Resolved]
  - Dehydration [Unknown]
  - Anaemia [Unknown]
  - Blood count abnormal [Unknown]
  - Syncope [Recovered/Resolved]
  - Neutropenia [Not Recovered/Not Resolved]
  - Vomiting [Unknown]
  - Red blood cell count abnormal [Unknown]

NARRATIVE: CASE EVENT DATE: 2016
